FAERS Safety Report 13227551 (Version 1)
Quarter: 2017Q1

REPORT INFORMATION
  Report Type: Spontaneous
  Country: GB (occurrence: GB)
  Receive Date: 20170213
  Receipt Date: 20170213
  Transmission Date: 20170428
  Serious: Yes (Life-Threatening, Hospitalization, Disabling, Other)
  Sender: FDA-Public Use
  Company Number: PHFR2017GB001150

PATIENT
  Age: 56 Year
  Sex: Female
  Weight: 150 kg

DRUGS (1)
  1. SECUKINUMAB [Suspect]
     Active Substance: SECUKINUMAB
     Indication: PSORIASIS
     Route: 042
     Dates: start: 201608

REACTIONS (2)
  - Sepsis [Unknown]
  - Necrotising fasciitis [Unknown]
